FAERS Safety Report 22663569 (Version 5)
Quarter: 2023Q4

REPORT INFORMATION
  Report Type: Spontaneous
  Country: HK (occurrence: HK)
  Receive Date: 20230703
  Receipt Date: 20231103
  Transmission Date: 20240109
  Serious: Yes (Hospitalization)
  Sender: FDA-Public Use
  Company Number: HK-NOVOPROD-1081063

PATIENT
  Age: 14 Year
  Sex: Female
  Weight: 45 kg

DRUGS (4)
  1. NOVORAPID [Suspect]
     Active Substance: INSULIN ASPART
     Dosage: 18 IU, QD(2 UNITS BEFORE BREAKFAST, 8 UNITS BEFORE LUNCH AND 8)
  2. NOVORAPID [Suspect]
     Active Substance: INSULIN ASPART
     Indication: Product used for unknown indication
     Dosage: UNK
  3. NOVORAPID [Suspect]
     Active Substance: INSULIN ASPART
     Dosage: UNK(EXTRA DOSE UPTO 15 IU AT MIDNIGHT)
     Dates: start: 20230517, end: 20230522
  4. Tresiba FlexTouch 100U/ML [Concomitant]
     Indication: Product used for unknown indication
     Dosage: 25 IU, QD(BEDTIME)

REACTIONS (4)
  - Diabetic ketosis [Recovered/Resolved]
  - Device defective [Unknown]
  - Device delivery system issue [Unknown]
  - Drug ineffective [Unknown]

NARRATIVE: CASE EVENT DATE: 20230517
